FAERS Safety Report 8407764-0 (Version None)
Quarter: 2012Q2

REPORT INFORMATION
  Report Type: 
  Country: None (occurrence: None)
  Receive Date: 20120604
  Receipt Date: 20120529
  Transmission Date: 20120825
  Serious: Yes (Congenital Anomaly)
  Sender: FDA-Public Use
  Company Number: US-GLAXOSMITHKLINE-A0979817A

PATIENT
  Sex: Female
  Weight: 3.4 kg

DRUGS (2)
  1. XANAX [Concomitant]
  2. PAXIL [Suspect]
     Indication: DEPRESSION
     Route: 064

REACTIONS (4)
  - ABNORMAL PALMAR/PLANTAR CREASES [None]
  - CLEFT UVULA [None]
  - TRISOMY 21 [None]
  - FOETAL EXPOSURE DURING PREGNANCY [None]
